FAERS Safety Report 8208185-6 (Version None)
Quarter: 2012Q1

REPORT INFORMATION
  Report Type: 
  Country: None (occurrence: None)
  Receive Date: 20120314
  Receipt Date: 20120308
  Transmission Date: 20120608
  Serious: Yes (Other)
  Sender: FDA-Public Use
  Company Number: PHFR2010GB01213

PATIENT
  Sex: Female

DRUGS (11)
  1. SENNA [Concomitant]
     Dosage: 15 MG/DAY
     Route: 048
  2. SULPIRIDE [Concomitant]
     Indication: MENTAL DISORDER
     Dosage: 400 MG/DAY
     Route: 048
  3. FOLIC ACID [Concomitant]
     Dosage: 5 MG/DAY
     Route: 048
  4. TRAMADOL HCL [Concomitant]
     Route: 048
  5. HYOSCINE HYDROBROMIDE [Concomitant]
     Indication: EXTRAPYRAMIDAL DISORDER
     Dosage: 600 UG/DAY
     Route: 048
  6. CLOZARIL [Suspect]
     Dosage: 350 MG DAILY
     Route: 048
     Dates: start: 20100901
  7. MIRTAZAPINE [Concomitant]
     Indication: DEMENTIA
     Dosage: 45 MG/DAY
     Route: 048
  8. CLOZARIL [Suspect]
     Indication: SCHIZOPHRENIA
     Dosage: 300MG/DAY
     Route: 048
     Dates: start: 20100625
  9. TEMAZEPAM [Concomitant]
     Indication: SLEEP DISORDER
     Dosage: 15 MG/DAY
     Route: 048
  10. LANSOPRAZOLE [Concomitant]
     Route: 048
  11. METFORMIN [Concomitant]
     Dosage: 1500 MG/DAY
     Route: 048

REACTIONS (4)
  - CHRONIC LYMPHOCYTIC LEUKAEMIA [None]
  - PAIN IN EXTREMITY [None]
  - WHITE BLOOD CELL COUNT INCREASED [None]
  - LYMPHOCYTE COUNT INCREASED [None]
